FAERS Safety Report 6532182-X (Version None)
Quarter: 2010Q1

REPORT INFORMATION
  Report Type: 
  Country: None (occurrence: None)
  Receive Date: 20100107
  Receipt Date: 20100107
  Transmission Date: 20100710
  Serious: No
  Sender: FDA-Public Use
  Company Number: None

PATIENT
  Age: 70 Year
  Sex: Male
  Weight: 122.4712 kg

DRUGS (1)
  1. ZICAM COLD REMEDY NAZAL GELSWABS ZINCUM GLUCONICUM 2X ZICAM LLC, SCOTT [Suspect]
     Indication: NASOPHARYNGITIS
     Dosage: ONE SWAB DAILY NASAL
     Route: 045
     Dates: start: 20091228, end: 20091231

REACTIONS (2)
  - AGEUSIA [None]
  - ANOSMIA [None]
